FAERS Safety Report 20919649 (Version 1)
Quarter: 2022Q2

REPORT INFORMATION
  Report Type: Report from Study
  Country: US (occurrence: US)
  Receive Date: 20220606
  Receipt Date: 20220606
  Transmission Date: 20220720
  Serious: Yes (Other)
  Sender: FDA-Public Use
  Company Number: US-BRISTOL-MYERS SQUIBB COMPANY-2022-015567

PATIENT
  Age: 49 Year
  Sex: Male
  Weight: 86.1 kg

DRUGS (3)
  1. YERVOY [Suspect]
     Active Substance: IPILIMUMAB
     Indication: Metastatic malignant melanoma
     Dosage: TWO DOSES IN THE BEGINNING?GIVEN BY INFUSION IN HIS PORT ON CHEST
     Route: 065
  2. OPDIVO [Suspect]
     Active Substance: NIVOLUMAB
     Indication: Metastatic malignant melanoma
     Dosage: INFUSION IN A PORT IN HIS CHEST
     Route: 065
     Dates: start: 201803, end: 202103
  3. OPDIVO [Suspect]
     Active Substance: NIVOLUMAB
     Route: 065

REACTIONS (14)
  - Back pain [Unknown]
  - Pain [Unknown]
  - Gait disturbance [Unknown]
  - Intervertebral disc protrusion [Unknown]
  - Hepatic enzyme increased [Unknown]
  - Memory impairment [Unknown]
  - Restlessness [Unknown]
  - Nausea [Unknown]
  - Vomiting [Unknown]
  - Thyroid disorder [Unknown]
  - Gastric disorder [Unknown]
  - Liver disorder [Unknown]
  - Angina pectoris [Unknown]
  - Arthralgia [Unknown]

NARRATIVE: CASE EVENT DATE: 20180101
